FAERS Safety Report 11654350 (Version 1)
Quarter: 2015Q4

REPORT INFORMATION
  Report Type: Spontaneous
  Country: US (occurrence: None)
  Receive Date: 20151022
  Receipt Date: 20151022
  Transmission Date: 20160304
  Serious: Yes (Hospitalization)
  Sender: FDA-Public Use
  Company Number: None

PATIENT
  Age: 74 Year
  Sex: Female
  Weight: 68.7 kg

DRUGS (21)
  1. ACLIDINIUM (TUDORZA PRESSAIR) [Concomitant]
  2. METOCLOPRAMIDE (REGLAN) [Concomitant]
     Active Substance: METOCLOPRAMIDE HYDROCHLORIDE
  3. DOCUSATE [Concomitant]
     Active Substance: DOCUSATE
  4. PROCHLORPERAZINE (COMPAZINE) [Concomitant]
  5. MORPHINE [Concomitant]
     Active Substance: MORPHINE
  6. CETIRIZINE (ZYRTEC) [Concomitant]
  7. ALBUTEROL. [Concomitant]
     Active Substance: ALBUTEROL
  8. SENNA [Concomitant]
     Active Substance: SENNA LEAF\SENNOSIDES\SENNOSIDES A AND B
  9. FLUTICASONE-SALMETEROL (ADVAIR DISKUS) [Concomitant]
  10. ZOFRAN [Concomitant]
     Active Substance: ONDANSETRON HYDROCHLORIDE
  11. GEMCITABINE 1000 MG/M2 [Suspect]
     Active Substance: GEMCITABINE HYDROCHLORIDE
     Indication: PANCREATIC CARCINOMA
     Route: 042
     Dates: start: 20150615, end: 20150629
  12. CLONAZEPAM (KLONOPIN) [Concomitant]
  13. PANCRELIPASE (CREON-LIPASE) [Concomitant]
  14. PANCRELIPASE (CREON) [Concomitant]
  15. MIRALAX [Concomitant]
     Active Substance: POLYETHYLENE GLYCOL 3350
  16. NAB-PACLITAXEL 125 MG/M2 [Suspect]
     Active Substance: PACLITAXEL
     Indication: PANCREATIC CARCINOMA
     Route: 042
     Dates: start: 20150615, end: 20150629
  17. KPT-330 (SELINXOR) [Concomitant]
  18. DEXAMETHASONE. [Concomitant]
     Active Substance: DEXAMETHASONE
  19. DECADRON [Concomitant]
     Active Substance: DEXAMETHASONE
  20. ACETAMINOPHEN-HYDROCODONE (NORCO) [Concomitant]
  21. IPRATROPIUM [Concomitant]
     Active Substance: IPRATROPIUM

REACTIONS (7)
  - Nausea [None]
  - Fatigue [None]
  - Malaise [None]
  - Vomiting [None]
  - Constipation [None]
  - Hyponatraemia [None]
  - Pain [None]

NARRATIVE: CASE EVENT DATE: 20150704
